FAERS Safety Report 5106886-X (Version None)
Quarter: 2006Q3

REPORT INFORMATION
  Report Type: 
  Country: None (occurrence: None)
  Receive Date: 20060913
  Receipt Date: 20060831
  Transmission Date: 20061208
  Serious: Yes (Death, Hospitalization)
  Sender: FDA-Public Use
  Company Number: HQWYE236101SEP06

PATIENT
  Age: 65 Year
  Sex: Female

DRUGS (11)
  1. PANTOPRAZOLE SODIUM [Suspect]
     Indication: PALLIATIVE CARE
     Dosage: 40 MG 1X PER 1 DAY ORAL
     Route: 048
     Dates: start: 20050101
  2. PREDNISOLONE [Concomitant]
  3. PAMOL (PARACETAMOL) [Concomitant]
  4. POTASSIUM CHLORIDE [Concomitant]
  5. EMPERAL (METOCLOPRAMIDE HYDROCHLORIDE) [Concomitant]
  6. FUROSEMIDE [Concomitant]
  7. FERROUS GLYCINE SULFATE (FERROUS GLYCINE SULFATE) [Concomitant]
  8. FRAGMIN [Concomitant]
  9. IMOZOP (ZOPICLONE) [Concomitant]
  10. OXAZEPAM [Concomitant]
  11. PROCTOSEDYL (CINCHOCAINE  HYDROCHLORIDE/ESCULOSIDE/FRAMYCETIN SULFATE/ [Concomitant]

REACTIONS (3)
  - HEPATOMEGALY [None]
  - JAUNDICE [None]
  - OEDEMA PERIPHERAL [None]
